FAERS Safety Report 5495616-8 (Version None)
Quarter: 2007Q4

REPORT INFORMATION
  Report Type: 
  Country: None (occurrence: None)
  Receive Date: 20071018
  Receipt Date: 20070102
  Transmission Date: 20080405
  Serious: Yes (Other)
  Sender: FDA-Public Use
  Company Number: 2006041609

PATIENT
  Age: 36 Year
  Sex: Male

DRUGS (2)
  1. NEURONTIN [Suspect]
     Indication: NEURALGIA
     Dosage: 600 MG
  2. ALL OTHER THERAPEUTIC PRODUCTS (ALL OTHER THERAPEUTIC PRODUCTS) [Suspect]

REACTIONS (4)
  - DRUG INEFFECTIVE [None]
  - MALAISE [None]
  - OVERDOSE [None]
  - SUICIDE ATTEMPT [None]
